FAERS Safety Report 4624343-1 (Version None)
Quarter: 2005Q1

REPORT INFORMATION
  Report Type: 
  Country: None (occurrence: None)
  Receive Date: 20050330
  Receipt Date: 20050330
  Transmission Date: 20050727
  Serious: Yes (Other)
  Sender: FDA-Public Use
  Company Number: None

PATIENT
  Age: 56 Year
  Sex: Female
  Weight: 81.6475 kg

DRUGS (3)
  1. MIRALAX [Suspect]
     Indication: CONSTIPATION
     Dosage: ONE TBSP BID
     Dates: start: 20040907
  2. MIRALAX [Suspect]
     Indication: HEADACHE
     Dosage: ONE TBSP BID
     Dates: start: 20040907
  3. MIRALAX [Suspect]
     Indication: SMALL INTESTINAL OBSTRUCTION
     Dosage: ONE TBSP BID
     Dates: start: 20040907

REACTIONS (4)
  - ABDOMINAL PAIN [None]
  - ANOREXIA [None]
  - CONSTIPATION [None]
  - PHARMACEUTICAL PRODUCT COMPLAINT [None]
